FAERS Safety Report 13171521 (Version 4)
Quarter: 2021Q1

REPORT INFORMATION
  Report Type: Spontaneous
  Country: US (occurrence: US)
  Receive Date: 20170131
  Receipt Date: 20210201
  Transmission Date: 20210419
  Serious: No
  Sender: FDA-Public Use
  Company Number: US-ABBVIE-16K-163-1682781-00

PATIENT

DRUGS (2)
  1. HUMIRA [Suspect]
     Active Substance: ADALIMUMAB
     Indication: PSORIATIC ARTHROPATHY
  2. HUMIRA [Suspect]
     Active Substance: ADALIMUMAB
     Indication: RHEUMATOID ARTHRITIS
     Route: 058

REACTIONS (10)
  - Musculoskeletal disorder [Unknown]
  - Arthritis [Unknown]
  - Arthralgia [Recovered/Resolved]
  - Decreased activity [Unknown]
  - Musculoskeletal stiffness [Unknown]
  - Mental impairment [Unknown]
  - Joint stiffness [Unknown]
  - Depressed mood [Unknown]
  - Arthralgia [Unknown]
  - Pain [Unknown]

NARRATIVE: CASE EVENT DATE: 20160721
